FAERS Safety Report 24391728 (Version 1)
Quarter: 2024Q4

REPORT INFORMATION
  Report Type: Spontaneous
  Country: GB (occurrence: GB)
  Receive Date: 20241003
  Receipt Date: 20241003
  Transmission Date: 20250114
  Serious: Yes (Other)
  Sender: HIKMA
  Company Number: GB-MHRA-WEBRADR-202409241033380650-FVZRY

PATIENT

DRUGS (4)
  1. MIDAZOLAM [Suspect]
     Active Substance: MIDAZOLAM
     Indication: Anaesthesia
     Dosage: 2 MILLIGRAM
     Route: 065
     Dates: start: 20240920
  2. PROPOFOL [Suspect]
     Active Substance: PROPOFOL
     Indication: Anaesthesia
     Dosage: UNKNOWN
     Route: 065
     Dates: start: 20240920
  3. REMIFENTANIL [Suspect]
     Active Substance: REMIFENTANIL
     Indication: Anaesthesia
     Dosage: UNKNOWN
     Route: 065
     Dates: start: 20240920
  4. ROCURONIUM [Suspect]
     Active Substance: ROCURONIUM BROMIDE
     Indication: Anaesthesia
     Dosage: 40 MILLIGRAM
     Route: 065
     Dates: start: 20240920, end: 20240920

REACTIONS (4)
  - Hypotension [Recovered/Resolved]
  - Bronchospasm [Recovered/Resolved]
  - Rash [Recovered/Resolved]
  - Airway peak pressure increased [Recovered/Resolved]

NARRATIVE: CASE EVENT DATE: 20240920
